FAERS Safety Report 20035578 (Version 3)
Quarter: 2021Q4

REPORT INFORMATION
  Report Type: Report from Study
  Country: US (occurrence: US)
  Receive Date: 20211104
  Receipt Date: 20211208
  Transmission Date: 20220303
  Serious: No
  Sender: FDA-Public Use
  Company Number: US-BEH-2021136886

PATIENT
  Age: 45 Year
  Sex: Female
  Weight: 88.6 kg

DRUGS (3)
  1. HIZENTRA [Suspect]
     Active Substance: HUMAN IMMUNOGLOBULIN G
     Indication: Primary immunodeficiency syndrome
     Dosage: 10 GRAM
     Route: 058
     Dates: start: 20210901
  2. HIZENTRA [Suspect]
     Active Substance: HUMAN IMMUNOGLOBULIN G
     Indication: Brain neoplasm benign
     Dosage: 10 GRAM, QW
     Route: 058
     Dates: start: 202109, end: 20211011
  3. HIZENTRA [Suspect]
     Active Substance: HUMAN IMMUNOGLOBULIN G
     Indication: Immunodeficiency common variable
     Dosage: 10 GRAM, QW
     Route: 058
     Dates: start: 20210929

REACTIONS (13)
  - Infusion site pruritus [Recovered/Resolved]
  - Pruritus [Recovered/Resolved]
  - Dehydration [Recovered/Resolved]
  - Infusion site pruritus [Recovered/Resolved]
  - Pruritus [Recovered/Resolved]
  - Dehydration [Recovered/Resolved]
  - Infusion site erythema [Unknown]
  - Recalled product administered [Unknown]
  - No adverse event [Unknown]
  - Off label use [Unknown]
  - Pruritus [Unknown]
  - Dyspnoea [Unknown]
  - Ill-defined disorder [Unknown]

NARRATIVE: CASE EVENT DATE: 20211004
